FAERS Safety Report 9404804 (Version 3)
Quarter: 2013Q4

REPORT INFORMATION
  Report Type: Spontaneous
  Country: JP (occurrence: JP)
  Receive Date: 20130717
  Receipt Date: 20131226
  Transmission Date: 20140711
  Serious: Yes (Hospitalization)
  Sender: FDA-Public Use
  Company Number: JP-PFIZER INC-2013204101

PATIENT
  Age: 64 Year
  Sex: Female
  Weight: 44 kg

DRUGS (13)
  1. INLYTA [Suspect]
     Indication: RENAL CANCER METASTATIC
     Dosage: 5 MG, 2X/DAY
     Route: 048
     Dates: start: 20130701, end: 20130706
  2. PARIET [Concomitant]
     Dosage: 10 MG, 1X/DAY
     Route: 048
  3. LASIX [Concomitant]
     Dosage: 20 MG, 1X/DAY
     Route: 048
  4. DEPAKENE [Concomitant]
     Dosage: 400 MG, 2X/DAY
     Route: 048
  5. PREDONINE [Concomitant]
     Dosage: 5 MG, 2X/DAY
     Route: 048
  6. E KEPPRA [Concomitant]
     Dosage: 500 MG, 2X/DAY
     Route: 048
  7. MAGLAX [Concomitant]
     Dosage: 500 MG, 2X/DAY
     Route: 048
  8. JUVELAN [Concomitant]
     Dosage: 200 MG, 2X/DAY
     Route: 048
  9. LOXONIN [Concomitant]
     Dosage: 60 MG, 1X/DAY
     Route: 048
  10. SELBEX [Concomitant]
     Dosage: 50 MG, 1X/DAY
     Route: 048
  11. PROCYLIN [Concomitant]
     Dosage: 40 UG, 2X/DAY
     Route: 048
  12. THYRADIN [Concomitant]
     Dosage: 50 UG, 2X/DAY
     Route: 048
  13. EPADEL [Concomitant]
     Dosage: 900 MG, 2X/DAY
     Route: 048

REACTIONS (1)
  - Epilepsy [Recovered/Resolved]
